FAERS Safety Report 19760031 (Version 3)
Quarter: 2021Q3

REPORT INFORMATION
  Report Type: Spontaneous
  Country: US (occurrence: US)
  Receive Date: 20210830
  Receipt Date: 20210930
  Transmission Date: 20211014
  Serious: No
  Sender: FDA-Public Use
  Company Number: US-SA-2021SA282767

PATIENT
  Age: 5 Year
  Sex: Male

DRUGS (2)
  1. DUPIXENT [Suspect]
     Active Substance: DUPILUMAB
     Indication: DERMATITIS ALLERGIC
     Dosage: UNK UNK, 1X
     Route: 058
     Dates: start: 20210828, end: 20210828
  2. DUPIXENT [Suspect]
     Active Substance: DUPILUMAB
     Indication: DERMATITIS ATOPIC
     Dosage: 300 MG, QOW
     Route: 058
     Dates: start: 20210909

REACTIONS (8)
  - Injection site pain [Not Recovered/Not Resolved]
  - Eczema [Unknown]
  - Product preparation error [Not Recovered/Not Resolved]
  - Product use in unapproved indication [Unknown]
  - Pain of skin [Unknown]
  - Product use issue [Unknown]
  - Pruritus [Unknown]
  - Needle issue [Unknown]

NARRATIVE: CASE EVENT DATE: 2021
